FAERS Safety Report 7125089-0 (Version None)
Quarter: 2010Q4

REPORT INFORMATION
  Report Type: 
  Country: None (occurrence: None)
  Receive Date: 20101129
  Receipt Date: 20101014
  Transmission Date: 20110411
  Serious: Yes (Other)
  Sender: FDA-Public Use
  Company Number: GB-AMGEN-KDC407947

PATIENT

DRUGS (8)
  1. DENOSUMAB [Suspect]
     Indication: PROSTATE CANCER
     Dosage: UNK UNK, UNK
     Dates: start: 20080611, end: 20091222
  2. BENDROFLUMETHIAZIDE [Concomitant]
     Dosage: 2.5 MG, QD
     Route: 048
     Dates: start: 20080930
  3. GOSERELIN [Concomitant]
     Dosage: 3.6 MG, Q4WK
     Route: 058
     Dates: start: 20051228
  4. ASPIRIN [Concomitant]
     Dosage: 75 MG, QD
     Route: 048
     Dates: start: 20051201
  5. NAPROXEN [Concomitant]
     Dosage: 250 MG, Q6H
     Route: 048
     Dates: start: 20060101
  6. FLUOXETINE [Concomitant]
     Dosage: 20 MG, BID
     Route: 048
     Dates: start: 20051201
  7. DIHYDROCODEINE BITARTRATE INJ [Concomitant]
     Dosage: 60 MG, TID
     Route: 048
     Dates: start: 20081015
  8. LACTULOSE [Concomitant]
     Dosage: 10 ML, PRN
     Route: 048

REACTIONS (10)
  - BACK PAIN [None]
  - FATIGUE [None]
  - GINGIVAL ULCERATION [None]
  - HAEMATURIA [None]
  - HYPERTENSION [None]
  - IMPAIRED HEALING [None]
  - MEDICAL DEVICE COMPLICATION [None]
  - METASTASES TO BONE [None]
  - OSTEOMYELITIS [None]
  - OSTEONECROSIS OF JAW [None]
